FAERS Safety Report 8529990-2 (Version None)
Quarter: 2012Q3

REPORT INFORMATION
  Report Type: 
  Country: None (occurrence: None)
  Receive Date: 20120723
  Receipt Date: 20120201
  Transmission Date: 20120928
  Serious: No
  Sender: FDA-Public Use
  Company Number: US-GLAXOSMITHKLINE-A0964217A

PATIENT
  Age: 77 Year
  Sex: Female

DRUGS (9)
  1. SIMVASTATIN [Concomitant]
  2. VITAMIN B-12 [Concomitant]
  3. FOLIC ACID [Concomitant]
  4. FISH OIL [Concomitant]
  5. ASPIRIN [Concomitant]
  6. ASCORBIC ACID [Concomitant]
  7. COQ10 [Concomitant]
  8. VITAMIN D [Concomitant]
  9. DYAZIDE [Suspect]
     Indication: OEDEMA
     Dosage: 1CAP PER DAY
     Route: 048
     Dates: start: 19630101

REACTIONS (2)
  - URINE OUTPUT DECREASED [None]
  - PRODUCT QUALITY ISSUE [None]
